FAERS Safety Report 17404591 (Version 1)
Quarter: 2020Q1

REPORT INFORMATION
  Report Type: Spontaneous
  Country: FR (occurrence: FR)
  Receive Date: 20200211
  Receipt Date: 20200211
  Transmission Date: 20200409
  Serious: Yes (Other)
  Sender: FDA-Public Use
  Company Number: FR-SEATTLE GENETICS-2020SGN00258

PATIENT
  Sex: Male

DRUGS (1)
  1. ADCETRIS [Suspect]
     Active Substance: BRENTUXIMAB VEDOTIN
     Indication: EPSTEIN BARR VIRUS POSITIVE MUCOCUTANEOUS ULCER
     Dosage: 1.8 MG/KG, Q3WEEKS
     Route: 042

REACTIONS (5)
  - Off label use [Recovered/Resolved]
  - Intestinal obstruction [Recovered/Resolved]
  - Pancytopenia [Recovered/Resolved]
  - Cytopenia [Recovered/Resolved]
  - Ileus [Recovered/Resolved]
